FAERS Safety Report 25698522 (Version 4)
Quarter: 2025Q4

REPORT INFORMATION
  Report Type: Report from Study
  Country: EU (occurrence: EU)
  Receive Date: 20250819
  Receipt Date: 20251009
  Transmission Date: 20260118
  Serious: Yes (Other)
  Sender: ABBVIE
  Company Number: EU-ABBVIE-6399191

PATIENT
  Age: 82 Year
  Sex: Female

DRUGS (19)
  1. FOSCARBIDOPA\FOSLEVODOPA [Suspect]
     Active Substance: FOSCARBIDOPA\FOSLEVODOPA
     Indication: Parkinson^s disease
     Dosage: 240 MG + 12 MG,?FREQUENCY: LO:0.9;HI:0.56;BA:0.53;LOW:0.4;EX:0.2?FISRT ADMIN DATE 2025
     Route: 058
     Dates: end: 20250714
  2. FOSCARBIDOPA\FOSLEVODOPA [Suspect]
     Active Substance: FOSCARBIDOPA\FOSLEVODOPA
     Dosage: 240 MG + 12 MG,?FREQUENCY:LO:0.9;HI:0.42;BA:0.34;LOW:0.24;EX:0.15?LAST ADMIN DATE 2025
     Route: 058
     Dates: start: 20241025
  3. FOSCARBIDOPA\FOSLEVODOPA [Suspect]
     Active Substance: FOSCARBIDOPA\FOSLEVODOPA
     Dosage: 240 MG + 12 MG,?FREQUENCY: LO:0.9;HI:0.56;BA:0.53;LOW:0.4;EX:0.2
     Route: 058
     Dates: start: 20250714, end: 20250805
  4. FOSCARBIDOPA\FOSLEVODOPA [Suspect]
     Active Substance: FOSCARBIDOPA\FOSLEVODOPA
     Dosage: 240 MG + 12 MG,?FREQUENCY: LO:0.9;HI:0.57;BA:0.52;LOW:0.4;EX:0.2
     Route: 058
     Dates: start: 20250805, end: 20250828
  5. Fisiogen [Concomitant]
     Indication: Product used for unknown indication
     Dosage: START DATE: BEFORE DUODOPA SUBCUTANEOUS
     Route: 048
  6. ASPIRIN [Concomitant]
     Active Substance: ASPIRIN
     Indication: Product used for unknown indication
     Dosage: 1 TABLET,?FORM STRENGTH: 100 MILLIGRAM,?START DATE: BEFORE DUODOPA SUBCUTANEOUS
     Route: 048
  7. VENLAFAXINE [Concomitant]
     Active Substance: VENLAFAXINE HYDROCHLORIDE
     Indication: Product used for unknown indication
     Dosage: 1 TABLET,?FORM STRENGTH: 75 MILLIGRAM,?START DATE: BEFORE DUODOPA SUBCUTANEOUS
     Route: 048
  8. OLMESARTAN [Concomitant]
     Active Substance: OLMESARTAN
     Indication: Hypertension
     Dosage: 1 TABLET,?FORM STRENGTH: 20  MILLIGRAM,?START DATE: BEFORE DUODOPA SUBCUTANEOUS
     Route: 048
  9. METHIMAZOLE [Concomitant]
     Active Substance: METHIMAZOLE
     Indication: Product used for unknown indication
     Dosage: 0.5 TABLET,?FORM STRENGTH: 5 MILLIGRAM,?START DATE: BEFORE DUODOPA SUBCUTANEOUS
     Route: 048
  10. FOLIC ACID [Concomitant]
     Active Substance: FOLIC ACID
     Indication: Product used for unknown indication
     Dosage: 1 TABLET
     Dates: start: 202505
  11. LASIX [Concomitant]
     Active Substance: FUROSEMIDE
     Indication: Product used for unknown indication
     Dosage: 1 TABLET,?FORM STRENGTH: 40 MILLIGRAM,?START DATE: BEFORE DUODOPA SUBCUTANEOUS
     Route: 048
  12. RIVOTRIL [Concomitant]
     Active Substance: CLONAZEPAM
     Indication: Product used for unknown indication
     Dosage: 1 TABLET,?FORM STRENGTH: 0.5 MILLIGRAM,?FREQUENCY: AT BEDTIME,?START DATE: BEFORE DUODOPA SUBCUTA...
     Route: 048
  13. RIVASTIGMINE [Concomitant]
     Active Substance: RIVASTIGMINE
     Indication: Product used for unknown indication
     Dosage: FORM STRENGTH: 9.5 MILLIGRAM,?START DATE: BEFORE DUODOPA SUBCUTANEOUS
     Route: 062
  14. CYANOCOBALAMIN [Concomitant]
     Active Substance: CYANOCOBALAMIN
     Indication: Product used for unknown indication
     Dosage: 1 TABLET
     Dates: start: 202505
  15. OPICAPONE [Concomitant]
     Active Substance: OPICAPONE
     Indication: Parkinson^s disease
     Dosage: 1 TABLET,?FORM STRENGTH: 50 MILLIGRAM,?FREQUENCY: AT BEDTIME,?START DATE: BEFORE DUODOPA SUBCUTAN...
     Route: 048
  16. ZONISAMIDE [Concomitant]
     Active Substance: ZONISAMIDE
     Indication: Epilepsy
     Dosage: FORM STRENGTH: 25 MILLIGRAM, FREQUENCY: AT NIGHT
     Dates: start: 202505
  17. NEUROBION [Concomitant]
     Active Substance: CYANOCOBALAMIN\PYRIDOXINE\THIAMINE
     Indication: Product used for unknown indication
     Dosage: 1 TABLET, FORM STRENGTH: 500 MILLIGRAM, FREQUENCY: AT BREAKFAST AND DINNER
     Dates: start: 202505
  18. LEVETIRACETAM [Concomitant]
     Active Substance: LEVETIRACETAM
     Indication: Epilepsy
     Dosage: TIME INTERVAL: 0.33333333 DAYS: 3 GRAM, FORM STRENGTH: 1 GRAM
     Dates: start: 202505
  19. AMANTADINE [Concomitant]
     Active Substance: AMANTADINE
     Indication: Parkinson^s disease

REACTIONS (15)
  - Acute kidney injury [Not Recovered/Not Resolved]
  - Infusion site swelling [Recovered/Resolved]
  - Infusion site hypertrophy [Not Recovered/Not Resolved]
  - Infusion site erythema [Recovered/Resolved]
  - Infusion site inflammation [Unknown]
  - Infusion site swelling [Not Recovered/Not Resolved]
  - Infusion site pain [Not Recovered/Not Resolved]
  - Infusion site pain [Recovered/Resolved]
  - Infusion site erythema [Not Recovered/Not Resolved]
  - Infusion site reaction [Unknown]
  - Infusion site warmth [Recovered/Resolved]
  - Infusion site erythema [Not Recovered/Not Resolved]
  - Infusion site pain [Not Recovered/Not Resolved]
  - Infusion site warmth [Not Recovered/Not Resolved]
  - Infusion site warmth [Not Recovered/Not Resolved]

NARRATIVE: CASE EVENT DATE: 20250723
